FAERS Safety Report 13602321 (Version 1)
Quarter: 2017Q2

REPORT INFORMATION
  Report Type: Spontaneous
  Country: AU (occurrence: AU)
  Receive Date: 20170601
  Receipt Date: 20170601
  Transmission Date: 20170830
  Serious: Yes (Other)
  Sender: FDA-Public Use
  Company Number: AU-009507513-1705AUS011970

PATIENT

DRUGS (2)
  1. KEYTRUDA [Suspect]
     Active Substance: PEMBROLIZUMAB
     Dosage: CYCLE 2
     Dates: start: 20170330
  2. KEYTRUDA [Suspect]
     Active Substance: PEMBROLIZUMAB
     Dosage: CYCLE 1

REACTIONS (7)
  - Liver function test abnormal [Recovering/Resolving]
  - Asthenia [Recovering/Resolving]
  - Hypokinesia [Recovering/Resolving]
  - Dysphonia [Recovering/Resolving]
  - Dysphagia [Recovering/Resolving]
  - Myocarditis [Unknown]
  - Neuropathy peripheral [Unknown]

NARRATIVE: CASE EVENT DATE: 20170413
